FAERS Safety Report 16558065 (Version 1)
Quarter: 2019Q3

REPORT INFORMATION
  Report Type: Report from Study
  Country: RO (occurrence: RO)
  Receive Date: 20190711
  Receipt Date: 20190711
  Transmission Date: 20191004
  Serious: Yes (Other)
  Sender: FDA-Public Use
  Company Number: RO-ROCHE-2352776

PATIENT
  Sex: Female
  Weight: 83 kg

DRUGS (1)
  1. HERCEPTIN [Suspect]
     Active Substance: TRASTUZUMAB
     Indication: BREAST CANCER
     Dosage: UNKNOWN
     Route: 065
     Dates: start: 20180101

REACTIONS (1)
  - White blood cell count abnormal [Unknown]
